FAERS Safety Report 19304431 (Version 1)
Quarter: 2021Q2

REPORT INFORMATION
  Report Type: Report from Study
  Country: US (occurrence: US)
  Receive Date: 20210525
  Receipt Date: 20210525
  Transmission Date: 20210717
  Serious: Yes (Hospitalization, Other)
  Sender: FDA-Public Use
  Company Number: US-TAKEDA-US202020816

PATIENT
  Sex: Male

DRUGS (12)
  1. TEDUGLUTIDE [Suspect]
     Active Substance: TEDUGLUTIDE
     Indication: MALABSORPTION
     Dosage: 0.07 MILLILITER, 1X/DAY:QD
     Route: 058
     Dates: start: 20190905
  2. TEDUGLUTIDE [Suspect]
     Active Substance: TEDUGLUTIDE
     Indication: MALABSORPTION
     Dosage: 0.07 MILLILITER, 1X/DAY:QD
     Route: 058
     Dates: start: 20190905
  3. TEDUGLUTIDE [Suspect]
     Active Substance: TEDUGLUTIDE
     Dosage: 0.07 MILLILITER, 1X/DAY:QD
     Route: 058
     Dates: start: 20190912
  4. TEDUGLUTIDE [Suspect]
     Active Substance: TEDUGLUTIDE
     Dosage: 0.07 MILLILITER, 1X/DAY:QD
     Route: 058
     Dates: start: 20190912
  5. TEDUGLUTIDE [Suspect]
     Active Substance: TEDUGLUTIDE
     Dosage: 0.07 MILLILITER, 1X/DAY:QD
     Route: 058
     Dates: start: 20190912
  6. TEDUGLUTIDE [Suspect]
     Active Substance: TEDUGLUTIDE
     Dosage: 0.07 MILLILITER, 1X/DAY:QD
     Route: 058
     Dates: start: 201909
  7. TEDUGLUTIDE [Suspect]
     Active Substance: TEDUGLUTIDE
     Indication: MALABSORPTION
     Dosage: 0.07 MILLILITER, 1X/DAY:QD
     Route: 058
     Dates: start: 20190905
  8. TEDUGLUTIDE [Suspect]
     Active Substance: TEDUGLUTIDE
     Dosage: 0.07 MILLILITER, 1X/DAY:QD
     Route: 058
     Dates: start: 201909
  9. TEDUGLUTIDE [Suspect]
     Active Substance: TEDUGLUTIDE
     Dosage: 0.07 MILLILITER, 1X/DAY:QD
     Route: 058
     Dates: start: 201909
  10. TEDUGLUTIDE [Suspect]
     Active Substance: TEDUGLUTIDE
     Indication: MALABSORPTION
     Dosage: 0.07 MILLILITER, 1X/DAY:QD
     Route: 058
     Dates: start: 20190905
  11. TEDUGLUTIDE [Suspect]
     Active Substance: TEDUGLUTIDE
     Dosage: 0.07 MILLILITER, 1X/DAY:QD
     Route: 058
     Dates: start: 201909
  12. TEDUGLUTIDE [Suspect]
     Active Substance: TEDUGLUTIDE
     Dosage: 0.07 MILLILITER, 1X/DAY:QD
     Route: 058
     Dates: start: 20190912

REACTIONS (4)
  - Injection site bruising [Unknown]
  - Abdominal pain upper [Unknown]
  - Catheter site infection [Unknown]
  - Muscle spasms [Unknown]
